FAERS Safety Report 6120650-4 (Version None)
Quarter: 2009Q1

REPORT INFORMATION
  Report Type: 
  Country: None (occurrence: None)
  Receive Date: 20090312
  Receipt Date: 20090312
  Transmission Date: 20090719
  Serious: Yes (Other)
  Sender: FDA-Public Use
  Company Number: None

PATIENT
  Age: 6 Year
  Sex: Male
  Weight: 20.4119 kg

DRUGS (2)
  1. SINGULAIR [Suspect]
     Indication: ASTHMA
     Dosage: 4MG -1 PILL- 1 TIME PER DAY BUCCAL
     Route: 002
     Dates: start: 20081123, end: 20090302
  2. SINGULAIR [Suspect]
     Indication: MULTIPLE ALLERGIES
     Dosage: 4MG -1 PILL- 1 TIME PER DAY BUCCAL
     Route: 002
     Dates: start: 20081123, end: 20090302

REACTIONS (6)
  - AGGRESSION [None]
  - ANXIETY [None]
  - FEAR [None]
  - IRRITABILITY [None]
  - MICTURITION DISORDER [None]
  - POLLAKIURIA [None]
